FAERS Safety Report 19487282 (Version 2)
Quarter: 2021Q3

REPORT INFORMATION
  Report Type: Spontaneous
  Country: US (occurrence: US)
  Receive Date: 20210702
  Receipt Date: 20210702
  Transmission Date: 20211014
  Serious: Yes (Other)
  Sender: FDA-Public Use
  Company Number: US-THE MENTHOLATUM COMPANY-2113417

PATIENT
  Age: 64 Year
  Sex: Female
  Weight: 83.64 kg

DRUGS (1)
  1. EQUATE MENTHOL PAIN RELIEVING [Suspect]
     Active Substance: MENTHOL
     Indication: MYALGIA
     Route: 061
     Dates: start: 20210625, end: 20210626

REACTIONS (2)
  - Blister [Recovering/Resolving]
  - Burning sensation [Recovering/Resolving]

NARRATIVE: CASE EVENT DATE: 20210626
